FAERS Safety Report 23952354 (Version 1)
Quarter: 2024Q2

REPORT INFORMATION
  Report Type: Spontaneous
  Country: US (occurrence: US)
  Receive Date: 20240607
  Receipt Date: 20240607
  Transmission Date: 20240716
  Serious: Yes (Death)
  Sender: FDA-Public Use
  Company Number: US-ZPPROD-ZP24US000895

PATIENT
  Sex: Male

DRUGS (4)
  1. ZEGALOGUE [Suspect]
     Active Substance: DASIGLUCAGON
     Indication: Product used for unknown indication
     Dosage: 0.6 MILLIGRAM, SINGLE
     Route: 058
  2. OZEMPIC [Suspect]
     Active Substance: SEMAGLUTIDE
     Indication: Diabetes mellitus
     Dosage: 0.25/ 0.50
     Route: 058
  3. TRESIBA [Suspect]
     Active Substance: INSULIN DEGLUDEC
     Indication: Diabetes mellitus
     Dosage: 200 INTERNATIONAL UNIT PER MILLILITRE
     Route: 058
  4. FIASP [Suspect]
     Active Substance: INSULIN ASPART
     Indication: Diabetes mellitus
     Dosage: 100
     Route: 058

REACTIONS (1)
  - Death [Fatal]
